FAERS Safety Report 19374225 (Version 4)
Quarter: 2022Q1

REPORT INFORMATION
  Report Type: Report from Study
  Country: US (occurrence: US)
  Receive Date: 20210603
  Receipt Date: 20220209
  Transmission Date: 20220424
  Serious: Yes (Hospitalization, Other)
  Sender: FDA-Public Use
  Company Number: NVSC2021US124428

PATIENT
  Age: 61 Year
  Sex: Male
  Weight: 107.95 kg

DRUGS (1)
  1. ENTRESTO [Suspect]
     Active Substance: SACUBITRIL\VALSARTAN
     Indication: Cardiac failure
     Dosage: 100 MG, BID, (49/51 MG)
     Route: 048
     Dates: start: 202005

REACTIONS (15)
  - Cardiac arrest [Recovered/Resolved]
  - Cyanosis [Recovered/Resolved]
  - Pneumonia [Recovered/Resolved]
  - Blood pressure fluctuation [Unknown]
  - Calcium deficiency [Recovered/Resolved]
  - Iron deficiency anaemia [Unknown]
  - Confusional state [Unknown]
  - Back disorder [Unknown]
  - Prostatic disorder [Unknown]
  - Dysuria [Unknown]
  - Neck pain [Unknown]
  - Amnesia [Unknown]
  - Weight decreased [Recovering/Resolving]
  - Fatigue [Unknown]
  - Hypotension [Unknown]

NARRATIVE: CASE EVENT DATE: 20200701
